FAERS Safety Report 10026533 (Version 4)
Quarter: 2014Q2

REPORT INFORMATION
  Report Type: Report from Study
  Country: US (occurrence: US)
  Receive Date: 20140321
  Receipt Date: 20140606
  Transmission Date: 20141212
  Serious: Yes (Death, Hospitalization)
  Sender: FDA-Public Use
  Company Number: US-BIOGENIDEC-2014BI024100

PATIENT
  Age: 63 Year
  Sex: Male

DRUGS (11)
  1. TECFIDERA [Suspect]
     Indication: MULTIPLE SCLEROSIS
     Route: 048
     Dates: start: 20130617, end: 20130624
  2. TECFIDERA [Suspect]
     Indication: MULTIPLE SCLEROSIS
     Route: 048
     Dates: start: 20130625, end: 20140323
  3. ASPIRIN [Concomitant]
  4. NEURONTIN [Concomitant]
  5. FERROUS SULFATE [Concomitant]
  6. TRIMETHOPRIM [Concomitant]
  7. AMINOPYRIDINE [Concomitant]
     Route: 048
  8. AQUAPHIL (NOS) [Concomitant]
     Route: 061
  9. SYMMETREL [Concomitant]
     Route: 048
  10. FUROSEMIDE [Concomitant]
     Route: 048
  11. SERTRALINE [Concomitant]
     Route: 048

REACTIONS (12)
  - Cardio-respiratory arrest [Fatal]
  - Urosepsis [Not Recovered/Not Resolved]
  - Respiratory failure [Not Recovered/Not Resolved]
  - Renal failure acute [Not Recovered/Not Resolved]
  - Pulmonary embolism [Not Recovered/Not Resolved]
  - Gastrointestinal haemorrhage [Recovered/Resolved]
  - Cellulitis [Unknown]
  - Hypernatraemia [Not Recovered/Not Resolved]
  - Hyperkalaemia [Not Recovered/Not Resolved]
  - Thrombophlebitis superficial [Unknown]
  - Muscular weakness [Not Recovered/Not Resolved]
  - Tremor [Not Recovered/Not Resolved]
